FAERS Safety Report 9150631 (Version 1)
Quarter: 2013Q1

REPORT INFORMATION
  Report Type: Spontaneous
  Country: US (occurrence: None)
  Receive Date: 20130219
  Receipt Date: 20130219
  Transmission Date: 20140127
  Serious: Yes (Other)
  Sender: FDA-Public Use
  Company Number: 1201-005

PATIENT
  Age: 37 Year
  Sex: Male
  Weight: 92.3 kg

DRUGS (3)
  1. RILONACEPT [Suspect]
     Indication: GOUT
     Route: 058
     Dates: start: 20111213, end: 20111227
  2. ALLOPURINOL [Suspect]
     Indication: GOUT
     Route: 048
     Dates: start: 20111213, end: 20111230
  3. FLUOCINOLONE [Concomitant]

REACTIONS (3)
  - Rash maculo-papular [None]
  - Rash erythematous [None]
  - Rash pruritic [None]
